FAERS Safety Report 7529304-0 (Version None)
Quarter: 2011Q2

REPORT INFORMATION
  Report Type: 
  Country: None (occurrence: None)
  Receive Date: 20110607
  Receipt Date: 20110527
  Transmission Date: 20111010
  Serious: Yes (Other)
  Sender: FDA-Public Use
  Company Number: US-JNJFOC-20100507303

PATIENT
  Age: 39 Year
  Sex: Male
  Weight: 68.04 kg

DRUGS (2)
  1. TYLENOL-500 [Suspect]
     Indication: PAIN
     Dosage: 2 CAPLETS AS NEEDED DAILY
     Route: 048
  2. TYLENOL-500 [Suspect]
     Indication: HEADACHE
     Dosage: 2 CAPLETS AS NEEDED DAILY
     Route: 048

REACTIONS (5)
  - DIZZINESS [None]
  - PRODUCT QUALITY ISSUE [None]
  - NAUSEA [None]
  - DEAFNESS [None]
  - EAR INFECTION [None]
